FAERS Safety Report 5419912-5 (Version None)
Quarter: 2007Q3

REPORT INFORMATION
  Report Type: 
  Country: None (occurrence: None)
  Receive Date: 20070820
  Receipt Date: 20070810
  Transmission Date: 20080115
  Serious: Yes (Other)
  Sender: FDA-Public Use
  Company Number: US-ABBOTT-07P-163-0377648-00

PATIENT
  Sex: Male

DRUGS (12)
  1. TRICOR [Suspect]
     Indication: DRUG USE FOR UNKNOWN INDICATION
     Route: 065
  2. RANOLAZINE [Suspect]
     Indication: ANGINA PECTORIS
     Route: 048
     Dates: start: 20070410, end: 20070612
  3. RANOLAZINE [Suspect]
     Route: 048
     Dates: start: 20070613, end: 20070701
  4. ROSUVASTATIN [Interacting]
     Indication: DRUG USE FOR UNKNOWN INDICATION
     Route: 048
     Dates: start: 20070410
  5. SIMVASTATIN [Concomitant]
     Indication: DRUG USE FOR UNKNOWN INDICATION
     Dates: end: 20070409
  6. ISOSORBIDE MONONITRATE [Concomitant]
     Indication: DRUG USE FOR UNKNOWN INDICATION
  7. ATENOLOL [Concomitant]
     Indication: DRUG USE FOR UNKNOWN INDICATION
  8. WARFARIN SODIUM [Concomitant]
     Indication: DRUG USE FOR UNKNOWN INDICATION
  9. ESOMEPRAZOLE MAGNESIUM [Concomitant]
     Indication: DRUG USE FOR UNKNOWN INDICATION
  10. FOLIC ACID [Concomitant]
     Indication: DRUG USE FOR UNKNOWN INDICATION
  11. CELECOXIB [Concomitant]
     Indication: DRUG USE FOR UNKNOWN INDICATION
     Dates: start: 20070515
  12. ASPIRIN [Concomitant]
     Indication: DRUG USE FOR UNKNOWN INDICATION

REACTIONS (6)
  - ARTHRALGIA [None]
  - BLOOD LACTATE DEHYDROGENASE INCREASED [None]
  - CHROMATURIA [None]
  - HEPATIC NEOPLASM MALIGNANT [None]
  - MYALGIA [None]
  - OEDEMA PERIPHERAL [None]
